FAERS Safety Report 25321440 (Version 1)
Quarter: 2025Q2

REPORT INFORMATION
  Report Type: Report from Study
  Country: GR (occurrence: GR)
  Receive Date: 20250516
  Receipt Date: 20250516
  Transmission Date: 20250717
  Serious: Yes (Hospitalization)
  Sender: TAKEDA
  Company Number: GR-TAKEDA-2024TUS122067

PATIENT
  Age: 71 Year
  Sex: Female

DRUGS (9)
  1. HUMAN IMMUNOGLOBULIN G\HYALURONIDASE RECOMBINANT HUMAN [Suspect]
     Active Substance: HUMAN IMMUNOGLOBULIN G\HYALURONIDASE (HUMAN RECOMBINANT)
     Indication: Immunodeficiency
  2. HUMAN IMMUNOGLOBULIN G\HYALURONIDASE RECOMBINANT HUMAN [Suspect]
     Active Substance: HUMAN IMMUNOGLOBULIN G\HYALURONIDASE (HUMAN RECOMBINANT)
  3. HUMAN IMMUNOGLOBULIN G\HYALURONIDASE RECOMBINANT HUMAN [Suspect]
     Active Substance: HUMAN IMMUNOGLOBULIN G\HYALURONIDASE (HUMAN RECOMBINANT)
     Dosage: 200 MILLILITER, MONTHLY
     Dates: start: 202411
  4. CORTISONE [Concomitant]
     Active Substance: CORTISONE
     Indication: Giant cell arteritis
  5. METHOTREXATE [Concomitant]
     Active Substance: METHOTREXATE
     Indication: Giant cell arteritis
  6. RABEPRAZOLE SODIUM [Concomitant]
     Active Substance: RABEPRAZOLE SODIUM
  7. MEDROL [Concomitant]
     Active Substance: METHYLPREDNISOLONE
     Indication: Giant cell arteritis
  8. ASPIRIN [Concomitant]
     Active Substance: ASPIRIN
     Indication: Giant cell arteritis
  9. FOLIC ACID [Concomitant]
     Active Substance: FOLIC ACID

REACTIONS (7)
  - Urinary tract infection [Recovered/Resolved with Sequelae]
  - Nausea [Not Recovered/Not Resolved]
  - Pyrexia [Not Recovered/Not Resolved]
  - Vomiting [Recovered/Resolved with Sequelae]
  - Abdominal discomfort [Recovered/Resolved]
  - Oropharyngeal pain [Recovering/Resolving]
  - Nasal congestion [Recovering/Resolving]

NARRATIVE: CASE EVENT DATE: 20241129
